FAERS Safety Report 13447337 (Version 1)
Quarter: 2017Q2

REPORT INFORMATION
  Report Type: Spontaneous
  Country: US (occurrence: US)
  Receive Date: 20170416
  Receipt Date: 20170416
  Transmission Date: 20170830
  Serious: No
  Sender: FDA-Public Use
  Company Number: None

PATIENT
  Age: 37 Year
  Sex: Female
  Weight: 76.5 kg

DRUGS (5)
  1. NORCO [Suspect]
     Active Substance: ACETAMINOPHEN\HYDROCODONE BITARTRATE
     Indication: TRIGEMINAL NEURALGIA
     Dosage: ?          QUANTITY:2 TABLET(S);?
     Route: 048
     Dates: start: 20170211, end: 20170211
  2. NORTRIPTYLINR [Concomitant]
  3. ADVIL [Concomitant]
     Active Substance: IBUPROFEN
  4. FLEXEROL [Concomitant]
  5. TEGRETOL [Concomitant]
     Active Substance: CARBAMAZEPINE

REACTIONS (2)
  - Ear discomfort [None]
  - Feeling hot [None]

NARRATIVE: CASE EVENT DATE: 20170416
